FAERS Safety Report 10333053 (Version 2)
Quarter: 2014Q3

REPORT INFORMATION
  Report Type: Spontaneous
  Country: US (occurrence: US)
  Receive Date: 20140722
  Receipt Date: 20140903
  Transmission Date: 20150326
  Serious: Yes (Other)
  Sender: FDA-Public Use
  Company Number: US-PFIZER INC-2014202851

PATIENT
  Age: 59 Year
  Sex: Male
  Weight: 72.56 kg

DRUGS (5)
  1. LISINOPRIL. [Concomitant]
     Active Substance: LISINOPRIL
     Indication: HYPERTENSION
     Dosage: UNK
  2. LYRICA [Suspect]
     Active Substance: PREGABALIN
     Indication: NEUROPATHY PERIPHERAL
     Dosage: 50 MG, UNK
     Route: 048
     Dates: start: 201102, end: 201310
  3. LYRICA [Suspect]
     Active Substance: PREGABALIN
     Indication: NERVE INJURY
     Dosage: 450 MG, DAILY
     Route: 048
     Dates: start: 201310, end: 201405
  4. LYRICA [Suspect]
     Active Substance: PREGABALIN
     Dosage: 150 MG, 2X/DAY (BY TAKING TWO 75MG IN THE MORNING AND TWO 75MG AT NIGHT)
     Route: 048
     Dates: start: 201405
  5. LYRICA [Suspect]
     Active Substance: PREGABALIN

REACTIONS (6)
  - Cryoglobulinaemia [Recovered/Resolved]
  - Vasculitis [Recovered/Resolved]
  - Hepatitis C [Recovered/Resolved]
  - Rheumatoid factor [Recovered/Resolved]
  - Malaise [Unknown]
  - Pain [Unknown]

NARRATIVE: CASE EVENT DATE: 2013
